FAERS Safety Report 7603324-X (Version None)
Quarter: 2011Q3

REPORT INFORMATION
  Report Type: 
  Country: None (occurrence: None)
  Receive Date: 20110712
  Receipt Date: 20110629
  Transmission Date: 20111222
  Serious: Yes (Hospitalization, Other)
  Sender: FDA-Public Use
  Company Number: PHHY2010CA69668

PATIENT
  Sex: Male

DRUGS (6)
  1. CALCIUM CARBONATE [Concomitant]
     Indication: PROPHYLAXIS
     Dosage: 500 MG, UNK
     Route: 048
  2. EXJADE [Suspect]
     Dosage: 1000/500 MG
     Route: 048
     Dates: start: 20101101, end: 20110101
  3. EXJADE [Suspect]
     Dosage: 500 MG, UNK
     Route: 048
     Dates: start: 20110201
  4. VITAMIN D [Concomitant]
     Dosage: 1000 IU, QD
     Route: 048
  5. FOLIC ACID [Concomitant]
     Dosage: 5 MG, QD
     Route: 048
  6. EXJADE [Suspect]
     Indication: THALASSAEMIA BETA
     Dosage: 2000 MG, QD
     Route: 048
     Dates: start: 20100608

REACTIONS (12)
  - DIABETES MELLITUS [None]
  - ORAL DISORDER [None]
  - FEELING ABNORMAL [None]
  - PYREXIA [None]
  - INFLUENZA [None]
  - SPLEEN DISORDER [None]
  - NEUTROPENIA [None]
  - MALAISE [None]
  - WHITE BLOOD CELL COUNT DECREASED [None]
  - RED BLOOD CELL COUNT DECREASED [None]
  - OROPHARYNGEAL PAIN [None]
  - LIVER DISORDER [None]
